FAERS Safety Report 7723918-0 (Version None)
Quarter: 2011Q3

REPORT INFORMATION
  Report Type: 
  Country: None (occurrence: None)
  Receive Date: 20110901
  Receipt Date: 20110830
  Transmission Date: 20111222
  Serious: Yes (Life-Threatening)
  Sender: FDA-Public Use
  Company Number: TN-ROXANE LABORATORIES, INC.-2009-RO-01060RO

PATIENT
  Age: 24 Year
  Sex: Female

DRUGS (5)
  1. PREDNISONE [Suspect]
     Indication: LUPUS NEPHRITIS
  2. FUROSEMIDE [Suspect]
     Dosage: 40 MG
  3. SPIRONOLACTONE [Suspect]
     Indication: LUPUS NEPHRITIS
  4. FUROSEMIDE [Suspect]
     Indication: LUPUS NEPHRITIS
     Dosage: 20 MG
  5. HYDROXYCHLOROQUINE [Suspect]
     Indication: LUPUS NEPHRITIS

REACTIONS (1)
  - TOXIC EPIDERMAL NECROLYSIS [None]
